FAERS Safety Report 5781363-1 (Version None)
Quarter: 2008Q2

REPORT INFORMATION
  Report Type: 
  Country: None (occurrence: None)
  Receive Date: 20080623
  Receipt Date: 20080617
  Transmission Date: 20081010
  Serious: Yes (Death, Other)
  Sender: FDA-Public Use
  Company Number: FR-BRISTOL-MYERS SQUIBB COMPANY-14236228

PATIENT
  Sex: Male

DRUGS (3)
  1. MITOMYCIN [Suspect]
     Indication: METASTASES TO LIVER
     Dosage: DOSE FORM=INJECTION
     Dates: start: 20080521
  2. XELODA [Concomitant]
     Route: 048
  3. FLUOROURACIL [Concomitant]

REACTIONS (4)
  - BONE MARROW FAILURE [None]
  - DEATH [None]
  - GASTROINTESTINAL INFLAMMATION [None]
  - SUPERINFECTION [None]
